FAERS Safety Report 6330512-5 (Version None)
Quarter: 2009Q3

REPORT INFORMATION
  Report Type: 
  Country: None (occurrence: None)
  Receive Date: 20090827
  Receipt Date: 20081006
  Transmission Date: 20100115
  Serious: No
  Sender: FDA-Public Use
  Company Number: A0748596A

PATIENT
  Age: 11 Year
  Sex: Female
  Weight: 29.5 kg

DRUGS (2)
  1. ZOVIRAX [Suspect]
     Dosage: 15CC PER DAY
     Route: 048
     Dates: start: 20080916, end: 20080918
  2. NO CONCURRENT MEDICATION [Concomitant]

REACTIONS (3)
  - ABDOMINAL PAIN UPPER [None]
  - DIARRHOEA [None]
  - FLATULENCE [None]
